FAERS Safety Report 9156578 (Version 1)
Quarter: 2013Q1

REPORT INFORMATION
  Report Type: Spontaneous
  Country: US (occurrence: None)
  Receive Date: 20130208
  Receipt Date: 20130208
  Transmission Date: 20140127
  Serious: Yes (Other)
  Sender: FDA-Public Use
  Company Number: 1590788

PATIENT
  Age: 15 Year
  Sex: Male

DRUGS (4)
  1. VINCRISTINE SULFATE [Suspect]
     Indication: ACUTE LYMPHOCYTIC LEUKAEMIA
  2. PREDNISONE [Suspect]
     Indication: ACUTE LYMPHOCYTIC LEUKAEMIA
  3. DAUNORUBICIN [Suspect]
     Indication: ACUTE LYMPHOCYTIC LEUKAEMIA
  4. ASPARAGINASE [Suspect]
     Indication: ACUTE LYMPHOCYTIC LEUKAEMIA

REACTIONS (6)
  - Inappropriate antidiuretic hormone secretion [None]
  - Toxicity to various agents [None]
  - Cholestasis [None]
  - Neuropathy peripheral [None]
  - Metabolic syndrome [None]
  - Hepatic steatosis [None]
